FAERS Safety Report 9262791 (Version 1)
Quarter: 2013Q2

REPORT INFORMATION
  Report Type: Spontaneous
  Country: US (occurrence: US)
  Receive Date: 20130430
  Receipt Date: 20130430
  Transmission Date: 20140414
  Serious: No
  Sender: FDA-Public Use
  Company Number: PHEH2013US007849

PATIENT
  Sex: Female

DRUGS (5)
  1. TASIGNA [Suspect]
     Indication: CHRONIC MYELOID LEUKAEMIA
     Dosage: UNK UKN, UNK
     Dates: start: 201303
  2. ATENOLOL [Concomitant]
     Indication: HYPERTENSION
     Dosage: 50 MG, BID
     Dates: start: 2004
  3. DIOVAN [Concomitant]
     Indication: HYPERTENSION
     Dosage: 1 UNK,
     Dates: start: 2006
  4. LEVOTHYROXIN [Concomitant]
     Indication: HYPOTHYROIDISM
     Dosage: 75 UNK, UNK
     Dates: start: 2006
  5. VITAMIN D [Concomitant]
     Dosage: 7000 OT, UNK
     Dates: start: 2010

REACTIONS (3)
  - Diarrhoea [Recovered/Resolved]
  - Rash [Recovered/Resolved]
  - Abdominal pain [Recovered/Resolved]
